FAERS Safety Report 9253336 (Version 4)
Quarter: 2013Q4

REPORT INFORMATION
  Report Type: Spontaneous
  Country: US (occurrence: US)
  Receive Date: 20130424
  Receipt Date: 20131105
  Transmission Date: 20140711
  Serious: Yes (Hospitalization, Other)
  Sender: FDA-Public Use
  Company Number: US-009507513-1304USA014185

PATIENT
  Sex: Female
  Weight: 56.69 kg

DRUGS (4)
  1. FOSAMAX PLUS D [Suspect]
     Indication: OSTEOPENIA
     Dosage: 70/2800 WEEKLY
     Route: 048
     Dates: start: 20061129, end: 20081201
  2. FOSAMAX [Suspect]
     Indication: OSTEOPENIA
     Dosage: 70 MG, QW
     Route: 048
  3. ALENDRONATE SODIUM [Suspect]
     Indication: OSTEOPENIA
     Dosage: 70 MG, UNK
     Dates: start: 20081226, end: 20100920
  4. ACTONEL [Suspect]
     Indication: OSTEOPENIA
     Dosage: 35 MG, UNK
     Dates: start: 20031115, end: 20061116

REACTIONS (18)
  - Femur fracture [Recovered/Resolved]
  - Femur fracture [Recovered/Resolved]
  - Intramedullary rod insertion [Unknown]
  - Ankle fracture [Recovered/Resolved]
  - Open reduction of fracture [Unknown]
  - Femur fracture [Unknown]
  - Intramedullary rod insertion [Unknown]
  - Impaired healing [Unknown]
  - Medical device pain [Unknown]
  - Medical device removal [Unknown]
  - Low turnover osteopathy [Unknown]
  - Hyperlipidaemia [Unknown]
  - Glaucoma [Unknown]
  - Keratomileusis [Unknown]
  - Diverticulum [Unknown]
  - Osteoarthritis [Unknown]
  - Hot flush [Unknown]
  - Dyspepsia [Unknown]
